FAERS Safety Report 10465158 (Version 2)
Quarter: 2014Q4

REPORT INFORMATION
  Report Type: Spontaneous
  Country: EE (occurrence: EE)
  Receive Date: 20140919
  Receipt Date: 20141002
  Transmission Date: 20150528
  Serious: Yes (Death)
  Sender: FDA-Public Use
  Company Number: EE-JNJFOC-20140913624

PATIENT
  Age: 82 Year
  Sex: Female
  Weight: 53 kg

DRUGS (8)
  1. XARELTO [Suspect]
     Active Substance: RIVAROXABAN
     Indication: EMBOLISM VENOUS
     Route: 048
     Dates: start: 20140811, end: 20140825
  2. TRIFAS [Concomitant]
     Indication: CARDIAC FAILURE
     Route: 048
     Dates: start: 20140122, end: 20140824
  3. CIPRINOL [Concomitant]
     Indication: UROGENITAL INFECTION BACTERIAL
     Route: 048
     Dates: start: 20140812, end: 20140824
  4. ACETYLSALICYLIC ACID [Concomitant]
     Active Substance: ASPIRIN
     Indication: DEEP VEIN THROMBOSIS
     Route: 048
     Dates: start: 2000, end: 20140824
  5. LASIX [Concomitant]
     Active Substance: FUROSEMIDE
     Indication: CARDIAC FAILURE
     Route: 048
     Dates: start: 20140122, end: 20140824
  6. DIGOXIN. [Concomitant]
     Active Substance: DIGOXIN
     Indication: CARDIAC FAILURE
     Route: 048
     Dates: start: 20140813, end: 20140824
  7. SPIRIX [Concomitant]
     Active Substance: SPIRONOLACTONE
     Indication: CARDIAC FAILURE
     Route: 048
     Dates: start: 20140801, end: 20140824
  8. XARELTO [Suspect]
     Active Substance: RIVAROXABAN
     Indication: DEEP VEIN THROMBOSIS
     Route: 048
     Dates: start: 20140811, end: 20140825

REACTIONS (3)
  - Cerebral haemorrhage [Fatal]
  - Death [Fatal]
  - Coma [Fatal]

NARRATIVE: CASE EVENT DATE: 20140825
